FAERS Safety Report 9547766 (Version 1)
Quarter: 2013Q2

REPORT INFORMATION
  Report Type: Spontaneous
  Country: US (occurrence: None)
  Receive Date: 20130628
  Receipt Date: 20130628
  Transmission Date: 20140414
  Serious: Yes (Hospitalization)
  Sender: FDA-Public Use
  Company Number: 287033

PATIENT
  Sex: Male

DRUGS (2)
  1. VANCOMYCIN HYDROCHLORIDE [Suspect]
     Indication: ANTIBIOTIC PROPHYLAXIS
     Dosage: UNKNOWN, 1 DAY, INTRAVENOUS
     Route: 042
     Dates: start: 20090519, end: 20090519
  2. CLINDAMYCIN [Concomitant]

REACTIONS (1)
  - Anaphylactic reaction [None]
